FAERS Safety Report 13287926 (Version 2)
Quarter: 2017Q1

REPORT INFORMATION
  Report Type: Spontaneous
  Country: MA (occurrence: MA)
  Receive Date: 20170302
  Receipt Date: 20170308
  Transmission Date: 20170428
  Serious: Yes (Other)
  Sender: FDA-Public Use
  Company Number: PHHY2017MA032472

PATIENT
  Age: 48 Year
  Sex: Female

DRUGS (1)
  1. IMATINIB [Suspect]
     Active Substance: IMATINIB
     Indication: CHRONIC MYELOID LEUKAEMIA
     Dosage: 400 MG, QD
     Route: 048
     Dates: start: 201501, end: 201507

REACTIONS (5)
  - Skin exfoliation [Recovering/Resolving]
  - Skin plaque [Recovering/Resolving]
  - Dermatitis psoriasiform [Recovering/Resolving]
  - Palmoplantar keratoderma [Recovering/Resolving]
  - Onychoclasis [Recovering/Resolving]
